FAERS Safety Report 5629380-6 (Version None)
Quarter: 2008Q1

REPORT INFORMATION
  Report Type: 
  Country: None (occurrence: None)
  Receive Date: 20080218
  Receipt Date: 20080207
  Transmission Date: 20080703
  Serious: Yes (Other)
  Sender: FDA-Public Use
  Company Number: US-BAYER-200812687GPV

PATIENT
  Age: 69 Year
  Sex: Female
  Weight: 68 kg

DRUGS (6)
  1. SORAFENIB [Suspect]
     Indication: RENAL CELL CARCINOMA
     Dosage: TOTAL DAILY DOSE: 200 MG
     Route: 065
  2. SUNITINIB [Suspect]
     Indication: RENAL CELL CARCINOMA
     Route: 048
  3. ATENOLOL [Concomitant]
     Indication: HYPERTENSION
     Dosage: AS USED: 50 MG
     Route: 048
  4. TRIAMTERENE AND HYDROCHLOROTHIAZIDE [Concomitant]
     Indication: HYPERTENSION
     Route: 048
  5. AMLODIPINE [Concomitant]
     Indication: HYPERTENSION
     Dosage: AS USED: 2.5 MG
     Route: 048
  6. MULTI-VITAMIN [Concomitant]
     Indication: DRUG USE FOR UNKNOWN INDICATION
     Dosage: TOTAL DAILY DOSE: 1 DF
     Route: 048

REACTIONS (2)
  - BLOOD CREATININE INCREASED [None]
  - EOSINOPHILIA [None]
